FAERS Safety Report 8990241 (Version 1)
Quarter: 2012Q4

REPORT INFORMATION
  Report Type: 
  Country: JP (occurrence: JP)
  Receive Date: 20121228
  Receipt Date: 20121228
  Transmission Date: 20130627
  Serious: Yes (Death, Life-Threatening, Other)
  Sender: FDA-Public Use
  Company Number: JP-OTSUKA-JP-2012-15998

PATIENT
  Age: 92 Year
  Sex: Male

DRUGS (2)
  1. PLETAAL [Suspect]
     Indication: PERIPHERAL ARTERIAL OCCLUSIVE DISEASE
     Dosage: 100 Mg milligram(s), bid
     Route: 048
     Dates: start: 20120707, end: 20120808
  2. ALDACTONE A [Concomitant]
     Indication: OEDEMA
     Dosage: 25 Mg milligram(s), qd
     Route: 048
     Dates: start: 20120703, end: 20120808

REACTIONS (5)
  - Subdural haematoma [Fatal]
  - Cerebral haemorrhage [Fatal]
  - Head injury [Fatal]
  - Fall [Unknown]
  - Contusion [None]
